FAERS Safety Report 17961158 (Version 1)
Quarter: 2020Q2

REPORT INFORMATION
  Report Type: Report from Study
  Country: US (occurrence: US)
  Receive Date: 20200630
  Receipt Date: 20200630
  Transmission Date: 20200714
  Serious: No
  Sender: FDA-Public Use
  Company Number: US-BIOVITRUM-2019US4023

PATIENT
  Age: 58 Year
  Sex: Male

DRUGS (4)
  1. KINERET [Suspect]
     Active Substance: ANAKINRA
     Indication: ARTHRALGIA
     Route: 058
  2. MITIGARE [Concomitant]
     Active Substance: COLCHICINE
     Indication: MUSCULOSKELETAL PAIN
  3. MITIGARE [Concomitant]
     Active Substance: COLCHICINE
     Indication: ARTHRALGIA
  4. MITIGARE [Concomitant]
     Active Substance: COLCHICINE
     Indication: ARTHRALGIA

REACTIONS (4)
  - Infection [Unknown]
  - Off label use [Not Recovered/Not Resolved]
  - Nasopharyngitis [Unknown]
  - Decreased immune responsiveness [Unknown]

NARRATIVE: CASE EVENT DATE: 20190726
